FAERS Safety Report 21630468 (Version 1)
Quarter: 2022Q4

REPORT INFORMATION
  Report Type: Spontaneous
  Country: US (occurrence: US)
  Receive Date: 20221122
  Receipt Date: 20221122
  Transmission Date: 20230113
  Serious: No
  Sender: FDA-Public Use
  Company Number: US-JNJFOC-20221120816

PATIENT

DRUGS (1)
  1. PONVORY [Suspect]
     Active Substance: PONESIMOD
     Indication: Product used for unknown indication
     Route: 048

REACTIONS (3)
  - Hypoaesthesia [Recovering/Resolving]
  - Gait disturbance [Recovering/Resolving]
  - Hypokinesia [Recovering/Resolving]
